FAERS Safety Report 4634833-3 (Version None)
Quarter: 2005Q3

REPORT INFORMATION
  Report Type: 
  Country: None (occurrence: None)
  Receive Date: 20050412
  Receipt Date: 20050406
  Transmission Date: 20060218
  Serious: Yes (Hospitalization, Other)
  Sender: FDA-Public Use
  Company Number: 200410363BNE

PATIENT
  Age: 72 Year
  Sex: Female
  Weight: 80 kg

DRUGS (13)
  1. SORAFENIB [Suspect]
     Indication: MALIGNANT MELANOMA
     Dosage: 400 MG, BID; ORAL
     Route: 048
     Dates: start: 20040519, end: 20040608
  2. DACARAZINE [Suspect]
     Indication: MALIGNANT MELANOMA
     Dates: start: 20040517
  3. METOCLOPRAMIDE [Concomitant]
  4. DEXAMETHASONE [Concomitant]
  5. PAMIDRONATE DISODIUM [Concomitant]
  6. TRAMADOL HCL [Concomitant]
  7. NAPROXEN [Concomitant]
  8. CO-AMILOFRUSE [Concomitant]
  9. FRUSEMIDE [Concomitant]
  10. PARACETAMOL [Concomitant]
  11. ATENOLOL [Concomitant]
  12. FERROUS SULFATE TAB [Concomitant]
  13. LANSOPRAZOLE [Concomitant]

REACTIONS (3)
  - BLOOD POTASSIUM INCREASED [None]
  - LEUKOPENIA [None]
  - RENAL IMPAIRMENT [None]
